FAERS Safety Report 10308571 (Version 1)
Quarter: 2014Q3

REPORT INFORMATION
  Report Type: Spontaneous
  Country: US (occurrence: US)
  Receive Date: 20140716
  Receipt Date: 20140716
  Transmission Date: 20150326
  Serious: Yes (Hospitalization)
  Sender: FDA-Public Use
  Company Number: US-GLAXOSMITHKLINE-A1081074A

PATIENT
  Age: 59 Year
  Sex: Female

DRUGS (12)
  1. TOPROL XL [Concomitant]
     Active Substance: METOPROLOL SUCCINATE
  2. PRILOSEC [Concomitant]
     Active Substance: OMEPRAZOLE MAGNESIUM
  3. POTASSIUM [Concomitant]
     Active Substance: POTASSIUM
  4. DIGOXIN. [Concomitant]
     Active Substance: DIGOXIN
  5. PACERONE [Concomitant]
     Active Substance: AMIODARONE HYDROCHLORIDE
  6. FLUTICASONE PROPIONATE. [Suspect]
     Active Substance: FLUTICASONE PROPIONATE
     Indication: RHINITIS ALLERGIC
     Dosage: 1SPR IN THE MORNING
     Route: 045
     Dates: start: 2004
  7. WARFARIN [Concomitant]
     Active Substance: WARFARIN
  8. PROBIOTICS [Concomitant]
     Active Substance: PROBIOTICS NOS
  9. METFORMIN [Concomitant]
     Active Substance: METFORMIN HYDROCHLORIDE
  10. FLOVENT [Suspect]
     Active Substance: FLUTICASONE PROPIONATE
     Indication: CHRONIC OBSTRUCTIVE PULMONARY DISEASE
     Dosage: 1PUFF TWICE PER DAY
     Route: 055
     Dates: start: 2004
  11. PRAVASTATIN [Concomitant]
     Active Substance: PRAVASTATIN\PRAVASTATIN SODIUM
  12. MVI [Concomitant]
     Active Substance: VITAMINS

REACTIONS (3)
  - Heart rate irregular [Recovered/Resolved]
  - Haemorrhoidal haemorrhage [Recovered/Resolved]
  - Uterine mass [Recovered/Resolved]

NARRATIVE: CASE EVENT DATE: 200911
